FAERS Safety Report 5315195-5 (Version None)
Quarter: 2007Q2

REPORT INFORMATION
  Report Type: 
  Country: None (occurrence: None)
  Receive Date: 20070502
  Receipt Date: 20070420
  Transmission Date: 20071010
  Serious: Yes (Other)
  Sender: FDA-Public Use
  Company Number: US-PFIZER INC-2007023860

PATIENT
  Sex: Female
  Weight: 68 kg

DRUGS (5)
  1. CHANTIX [Suspect]
     Indication: SMOKING CESSATION THERAPY
     Dates: start: 20070228, end: 20070318
  2. KLONOPIN [Suspect]
     Indication: DEPRESSION
  3. NEXIUM [Concomitant]
  4. IBUPROFEN [Concomitant]
  5. LOESTRIN [Concomitant]
     Dosage: TEXT:1/20

REACTIONS (7)
  - DEHYDRATION [None]
  - DEPRESSION [None]
  - DRUG INEFFECTIVE [None]
  - FEELING ABNORMAL [None]
  - MICTURITION DISORDER [None]
  - OLIGODIPSIA [None]
  - WEIGHT INCREASED [None]
